FAERS Safety Report 6286759-X (Version None)
Quarter: 2009Q3

REPORT INFORMATION
  Report Type: 
  Country: None (occurrence: None)
  Receive Date: 20090728
  Receipt Date: 20090724
  Transmission Date: 20100115
  Serious: Yes (Death, Hospitalization, Other)
  Sender: FDA-Public Use
  Company Number: JP-BAYER-200811817BYL

PATIENT
  Age: 79 Year
  Sex: Male
  Weight: 57 kg

DRUGS (9)
  1. NEXAVAR [Suspect]
     Indication: RENAL CELL CARCINOMA STAGE IV
     Dosage: UNIT DOSE: 200 MG
     Route: 048
     Dates: start: 20080509, end: 20080522
  2. NEXAVAR [Suspect]
     Dosage: UNIT DOSE: 200 MG
     Route: 048
     Dates: start: 20080523, end: 20080620
  3. NEXAVAR [Suspect]
     Dosage: TOTAL DAILY DOSE: 400 MG  UNIT DOSE: 200 MG
     Route: 048
     Dates: start: 20080704
  4. ZYLORIC [Concomitant]
     Route: 048
     Dates: start: 20080523
  5. LUPRAC [Concomitant]
     Route: 048
     Dates: start: 20081219
  6. LUPRAC [Concomitant]
     Route: 048
     Dates: start: 20090624
  7. OXYCONTIN [Concomitant]
     Dosage: TOTAL DAILY DOSE: 40 MG
     Route: 048
     Dates: start: 20090624
  8. DECADRON [Concomitant]
     Route: 048
     Dates: start: 20090624
  9. TAKEPRON [Concomitant]
     Route: 048
     Dates: start: 20090624

REACTIONS (9)
  - ALOPECIA [None]
  - AORTIC DISSECTION [None]
  - BLOOD AMYLASE INCREASED [None]
  - DIARRHOEA [None]
  - HYPERAMYLASAEMIA [None]
  - HYPERTENSION [None]
  - PALMAR-PLANTAR ERYTHRODYSAESTHESIA SYNDROME [None]
  - RENAL CELL CARCINOMA [None]
  - RENAL DISORDER [None]
